FAERS Safety Report 9143216 (Version 4)
Quarter: 2014Q1

REPORT INFORMATION
  Report Type: Report from Study
  Country: IT (occurrence: IT)
  Receive Date: 20130306
  Receipt Date: 20140123
  Transmission Date: 20141002
  Serious: Yes (Other)
  Sender: FDA-Public Use
  Company Number: IT-CELGENEUS-083-21880-13023557

PATIENT
  Age: 66 Year
  Sex: Male
  Weight: 64 kg

DRUGS (14)
  1. REVLIMID [Suspect]
     Indication: PLASMA CELL MYELOMA
     Dosage: 15 MILLIGRAM
     Route: 048
     Dates: start: 20100804, end: 20100824
  2. REVLIMID [Suspect]
     Indication: PLASMA CELL MYELOMA
     Dosage: 15 MILLIGRAM
     Route: 048
     Dates: start: 20110915, end: 20111005
  3. REVLIMID [Suspect]
     Dosage: 15 MILLIGRAM
     Route: 048
     Dates: start: 20111013, end: 20111102
  4. REVLIMID [Suspect]
     Route: 048
     Dates: start: 20100804, end: 20120321
  5. DEXAMETHASONE [Suspect]
     Indication: PLASMA CELL MYELOMA
     Route: 048
     Dates: start: 20100804, end: 20100903
  6. DEXAMETHASONE [Suspect]
     Dosage: TOTAL MONTHLY DOSE
     Route: 048
     Dates: start: 20111109, end: 20111206
  7. DEXAMETHASONE [Suspect]
     Dosage: TOTAL MONTHLY DOSE
     Route: 048
     Dates: start: 20110915, end: 20111012
  8. DEXAMETHASONE [Suspect]
     Dosage: TOTAL MONTHLY DOSE
     Route: 048
     Dates: start: 20111013, end: 20111109
  9. DEXAMETHASONE [Suspect]
     Route: 048
     Dates: start: 20100804, end: 20120321
  10. CARDIOASPIRINE [Concomitant]
     Indication: PROPHYLAXIS
     Dosage: 100 MILLIGRAM
     Route: 048
     Dates: start: 20100804, end: 20120321
  11. ANTRA [Concomitant]
     Indication: PROPHYLAXIS
     Dosage: 20 MILLIGRAM
     Route: 048
     Dates: start: 20100804, end: 20120321
  12. ANTRA [Concomitant]
     Indication: PLASMA CELL MYELOMA
  13. ANTRA [Concomitant]
     Indication: PLASMA CELL MYELOMA
  14. ARANESP [Concomitant]
     Indication: ANAEMIA
     Route: 058
     Dates: start: 20100826, end: 20130321

REACTIONS (1)
  - Squamous cell carcinoma of skin [Recovered/Resolved]
